FAERS Safety Report 8263803-1 (Version None)
Quarter: 2012Q2

REPORT INFORMATION
  Report Type: 
  Country: None (occurrence: None)
  Receive Date: 20120405
  Receipt Date: 20120329
  Transmission Date: 20120825
  Serious: Yes (Other)
  Sender: FDA-Public Use
  Company Number: US-ALLERGAN-1202400US

PATIENT
  Age: 55 Year
  Sex: Female

DRUGS (11)
  1. NATURE-THYROID [Concomitant]
     Indication: HYPOTHYROIDISM
     Dosage: 0.25 MG, QD
     Route: 048
  2. PROVERA [Concomitant]
     Dosage: UNK
  3. EPIPEN [Concomitant]
     Indication: HYPERSENSITIVITY
     Dosage: UNK
  4. ALPRAZOLAM [Concomitant]
     Indication: ANXIETY
     Dosage: 0.5 MG, PRN
  5. PULMICORT [Concomitant]
     Indication: ASTHMA
     Dosage: UNK
  6. SYNTHROID [Concomitant]
     Indication: HYPOTHYROIDISM
     Dosage: UNK
     Route: 048
  7. ESTRADIAL [Concomitant]
     Dosage: UNK
     Route: 048
  8. SAVELLA [Concomitant]
     Dosage: UNK
  9. ALBUTEROL [Concomitant]
     Indication: ASTHMA
     Dosage: UNK
  10. BOTULINUM TOXIN TYPE A [Suspect]
     Indication: MIGRAINE
     Dosage: 100 UNITS, SINGLE
     Route: 030
     Dates: start: 20111122, end: 20111122
  11. RESTASIS [Concomitant]
     Dosage: UNK

REACTIONS (5)
  - MUSCLE SPASMS [None]
  - DRUG HYPERSENSITIVITY [None]
  - CONVULSION [None]
  - NERVOUS SYSTEM DISORDER [None]
  - CONFUSIONAL STATE [None]
